FAERS Safety Report 10405584 (Version 1)
Quarter: 2014Q3

REPORT INFORMATION
  Report Type: Spontaneous
  Country: US (occurrence: None)
  Receive Date: 20140822
  Receipt Date: 20140822
  Transmission Date: 20150326
  Serious: No
  Sender: FDA-Public Use
  Company Number: None

PATIENT
  Sex: Female
  Weight: 87.09 kg

DRUGS (2)
  1. FENTANYL GENERIC [Suspect]
     Active Substance: FENTANYL
     Indication: PAIN
  2. FENTANYL GENERIC [Suspect]
     Active Substance: FENTANYL
     Indication: PRODUCT USED FOR UNKNOWN INDICATION

REACTIONS (2)
  - Application site haemorrhage [None]
  - Furuncle [None]

NARRATIVE: CASE EVENT DATE: 2009
